FAERS Safety Report 16084064 (Version 1)
Quarter: 2019Q2

REPORT INFORMATION
  Report Type: Spontaneous
  Country: US (occurrence: US)
  Receive Date: 20190316
  Receipt Date: 20190316
  Transmission Date: 20190711
  Serious: Yes (Disabling)
  Sender: FDA-Public Use
  Company Number: None

PATIENT
  Age: 27 Year
  Sex: Male
  Weight: 49.5 kg

DRUGS (3)
  1. ANDROGEL [Concomitant]
     Active Substance: TESTOSTERONE
  2. LUPRON [Suspect]
     Active Substance: LEUPROLIDE ACETATE
     Indication: HORMONE THERAPY
     Dosage: ?          QUANTITY:1 INJECTION(S);OTHER FREQUENCY:3 MONTH PERIOD;?
     Route: 030
  3. EQUATE MULTIVITAMIN [Concomitant]

REACTIONS (8)
  - Asthenia [None]
  - Quality of life decreased [None]
  - Depression [None]
  - Hot flush [None]
  - Memory impairment [None]
  - Night sweats [None]
  - Decreased appetite [None]
  - Anxiety [None]

NARRATIVE: CASE EVENT DATE: 20190315
